FAERS Safety Report 17580672 (Version 1)
Quarter: 2020Q1

REPORT INFORMATION
  Report Type: Spontaneous
  Country: US (occurrence: US)
  Receive Date: 20200325
  Receipt Date: 20200325
  Transmission Date: 20200409
  Serious: No
  Sender: FDA-Public Use
  Company Number: US-009507513-2003USA008250

PATIENT
  Age: 16 Year
  Sex: Female

DRUGS (8)
  1. MEROPENEM. [Concomitant]
     Active Substance: MEROPENEM
     Indication: CENTRAL NERVOUS SYSTEM INFECTION
  2. RIFAXIMIN. [Concomitant]
     Active Substance: RIFAXIMIN
  3. RIFAMPIN. [Concomitant]
     Active Substance: RIFAMPIN
  4. SULFAMETHOXAZOLE (+) TRIMETHOPRIM [Concomitant]
     Active Substance: SULFAMETHOXAZOLE\TRIMETHOPRIM
  5. ACYCLOVIR. [Concomitant]
     Active Substance: ACYCLOVIR
     Indication: CENTRAL NERVOUS SYSTEM INFECTION
  6. CUBICIN [Suspect]
     Active Substance: DAPTOMYCIN
     Indication: CENTRAL NERVOUS SYSTEM INFECTION
  7. VANCOMYCIN [Concomitant]
     Active Substance: VANCOMYCIN
  8. AMPHOTERICIN B (+) CHOLESTEROL (+) DISTEAROYLPHOSPHATIDYLGLYCEROL (+) [Concomitant]
     Active Substance: AMPHOTERICIN B\CHOLESTEROL
     Indication: CENTRAL NERVOUS SYSTEM INFECTION

REACTIONS (1)
  - Product use in unapproved indication [Unknown]
